FAERS Safety Report 6997659-1 (Version None)
Quarter: 2010Q3

REPORT INFORMATION
  Report Type: 
  Country: None (occurrence: None)
  Receive Date: 20100918
  Receipt Date: 20091110
  Transmission Date: 20110219
  Serious: No
  Sender: FDA-Public Use
  Company Number: US-WYE-H12144009

PATIENT
  Age: 58 Year
  Sex: Female

DRUGS (3)
  1. PREMPRO [Suspect]
     Indication: MENOPAUSE
     Dosage: 0.3MG/1.5MG DAILY
     Route: 048
     Dates: start: 20050101, end: 20090901
  2. PREMPRO [Suspect]
     Indication: HOT FLUSH
  3. SYNTHROID [Concomitant]

REACTIONS (4)
  - ANXIETY [None]
  - DRUG WITHDRAWAL SYNDROME [None]
  - HOT FLUSH [None]
  - INSOMNIA [None]
